FAERS Safety Report 14367208 (Version 1)
Quarter: 2018Q1

REPORT INFORMATION
  Report Type: Spontaneous
  Country: US (occurrence: US)
  Receive Date: 20180108
  Receipt Date: 20180108
  Transmission Date: 20180509
  Serious: No
  Sender: FDA-Public Use
  Company Number: None

PATIENT
  Age: 47 Year
  Sex: Female

DRUGS (1)
  1. SIPRONLATONE [Suspect]
     Active Substance: SPIRONOLACTONE
     Route: 048
     Dates: start: 20171231, end: 20180105

REACTIONS (4)
  - Abdominal discomfort [None]
  - Drug intolerance [None]
  - Nausea [None]
  - Vomiting [None]

NARRATIVE: CASE EVENT DATE: 20171231
